FAERS Safety Report 5150593-4 (Version None)
Quarter: 2006Q4

REPORT INFORMATION
  Report Type: 
  Country: None (occurrence: None)
  Receive Date: 20061114
  Receipt Date: 20061109
  Transmission Date: 20070319
  Serious: Yes (Other)
  Sender: FDA-Public Use
  Company Number: AU-BRISTOL-MYERS SQUIBB COMPANY-13572185

PATIENT
  Age: 66 Year
  Sex: Female
  Weight: 85 kg

DRUGS (3)
  1. PRAVACHOL [Suspect]
     Indication: BLOOD CHOLESTEROL INCREASED
     Route: 048
     Dates: start: 20050512, end: 20050926
  2. VOLTAREN [Concomitant]
     Indication: PAIN
     Dates: start: 20040308
  3. CODALGIN FORTE [Concomitant]
     Indication: PAIN
     Route: 048
     Dates: start: 20050512

REACTIONS (9)
  - AMNESIA [None]
  - ASTHENIA [None]
  - BLOOD PRESSURE INCREASED [None]
  - CONFUSIONAL STATE [None]
  - FATIGUE [None]
  - FLUSHING [None]
  - MUSCLE TWITCHING [None]
  - PAIN [None]
  - SOMNOLENCE [None]
